FAERS Safety Report 9247819 (Version 4)
Quarter: 2013Q4

REPORT INFORMATION
  Report Type: Spontaneous
  Country: PT (occurrence: PT)
  Receive Date: 20130423
  Receipt Date: 20131220
  Transmission Date: 20140711
  Serious: Yes (Death)
  Sender: FDA-Public Use
  Company Number: PT-PFIZER INC-2013118962

PATIENT
  Age: 82 Year
  Sex: Male
  Weight: 40 kg

DRUGS (6)
  1. EFEXOR XR [Suspect]
     Indication: ANXIETY
     Dosage: 150 MG, 2X/DAY
     Route: 048
     Dates: start: 20130220, end: 201303
  2. EFEXOR XR [Interacting]
     Indication: PANIC ATTACK
     Dosage: REDUCED DOSE
     Route: 048
     Dates: start: 20130308
  3. ANAFRANIL [Interacting]
     Indication: ANXIETY
     Dosage: 75 MG, 2X/DAY
     Route: 048
     Dates: start: 20121201, end: 201303
  4. ANAFRANIL [Interacting]
     Indication: PANIC ATTACK
     Dosage: REDUCED DOSE
     Route: 048
     Dates: start: 20130308
  5. ADT [Interacting]
     Indication: DEPRESSION
     Dosage: 25 MG, 1X/DAY
     Route: 048
     Dates: start: 20120920, end: 201303
  6. ADT [Interacting]
     Dosage: REDUCED DOSE
     Route: 048
     Dates: start: 20130308

REACTIONS (5)
  - Drug interaction [Fatal]
  - Cerebrovascular accident [Fatal]
  - Serotonin syndrome [Fatal]
  - Pupil fixed [Fatal]
  - Insomnia [Fatal]
